FAERS Safety Report 8251753-6 (Version None)
Quarter: 2012Q2

REPORT INFORMATION
  Report Type: 
  Country: None (occurrence: None)
  Receive Date: 20120402
  Receipt Date: 20120322
  Transmission Date: 20120825
  Serious: Yes (Hospitalization, Other)
  Sender: FDA-Public Use
  Company Number: NL-JNJFOC-20120112656

PATIENT
  Age: 25 Year
  Sex: Male
  Weight: 50 kg

DRUGS (13)
  1. PANTOPRAZOLE [Concomitant]
     Route: 048
  2. ENTOCORT EC [Concomitant]
     Indication: COLITIS ULCERATIVE
     Dates: end: 20111102
  3. REMICADE [Suspect]
     Indication: COLITIS ULCERATIVE
     Route: 042
     Dates: start: 20110530, end: 20110823
  4. LOPERAMIDE [Concomitant]
     Indication: DIARRHOEA
     Route: 048
     Dates: end: 20110411
  5. PRIMPERAN TAB [Concomitant]
  6. REMICADE [Suspect]
     Dosage: INDUCTION THERAPY WITHOUT EFFECT
     Route: 042
     Dates: start: 20070101
  7. DEHYDROBENZPERIDOL [Concomitant]
  8. TRAMADOL HCL [Concomitant]
     Indication: ABDOMINAL PAIN
  9. METOCLOPRAMIDE [Concomitant]
  10. FLUTICASONE PROPIONATE/SALMETEROL [Concomitant]
     Indication: ASTHMA
     Dosage: 50/500 MCG ORAL DAILY
  11. CALCIUM CARBONATE [Concomitant]
     Indication: OSTEOPENIA
     Route: 048
     Dates: start: 20080804
  12. FRAXIPARINE [Concomitant]
  13. ACETAMINOPHEN [Concomitant]
     Indication: ABDOMINAL PAIN

REACTIONS (2)
  - COLITIS ULCERATIVE [None]
  - POUCHITIS [None]
